FAERS Safety Report 11863580 (Version 2)
Quarter: 2016Q1

REPORT INFORMATION
  Report Type: Spontaneous
  Country: FR (occurrence: FR)
  Receive Date: 20151223
  Receipt Date: 20160126
  Transmission Date: 20160526
  Serious: Yes (Hospitalization, Other)
  Sender: FDA-Public Use
  Company Number: FR-BAYER-2015-491808

PATIENT
  Sex: Female
  Weight: .75 kg

DRUGS (4)
  1. CORTICOSTEROID NOS [Concomitant]
     Active Substance: CORTICOSTEROID NOS
     Indication: MATERNAL THERAPY TO ENHANCE FOETAL LUNG MATURITY
     Dosage: TWO ROUNDS
     Route: 064
  2. ADALAT [Suspect]
     Active Substance: NIFEDIPINE
     Indication: TOCOLYSIS
  3. ADALAT [Suspect]
     Active Substance: NIFEDIPINE
     Indication: TOCOLYSIS
  4. CORTICOSTEROID NOS [Concomitant]
     Active Substance: CORTICOSTEROID NOS
     Indication: MATERNAL THERAPY TO ENHANCE FOETAL LUNG MATURITY
     Dosage: TWO ROUNDS
     Route: 064

REACTIONS (5)
  - Foetal growth restriction [Recovered/Resolved]
  - Foetal exposure during pregnancy [None]
  - Premature baby [Recovered/Resolved]
  - pH body fluid normal [Recovered/Resolved]
  - Foetal heart rate deceleration abnormality [Recovered/Resolved]
